FAERS Safety Report 25206558 (Version 1)
Quarter: 2025Q2

REPORT INFORMATION
  Report Type: Spontaneous
  Country: US (occurrence: US)
  Receive Date: 20250417
  Receipt Date: 20250417
  Transmission Date: 20250716
  Serious: Yes (Hospitalization, Other)
  Sender: RANBAXY
  Company Number: US-SUN PHARMACEUTICAL INDUSTRIES LTD-2025R1-503822

PATIENT
  Age: 23 Year
  Sex: Female
  Weight: 72 kg

DRUGS (5)
  1. BUPIVACAINE [Suspect]
     Active Substance: BUPIVACAINE
     Indication: Anaesthesia
     Route: 064
  2. FENTANYL [Suspect]
     Active Substance: FENTANYL
     Indication: Anaesthesia
     Route: 064
  3. MORPHINE [Suspect]
     Active Substance: MORPHINE
     Indication: Anaesthesia
     Route: 064
  4. PHENYLEPHRINE [Suspect]
     Active Substance: PHENYLEPHRINE
     Indication: Blood pressure systolic abnormal
     Route: 064
  5. ESMOLOL [Suspect]
     Active Substance: ESMOLOL HYDROCHLORIDE
     Indication: Product used for unknown indication
     Route: 042

REACTIONS (3)
  - Exposure during pregnancy [Unknown]
  - Therapeutic response decreased [Unknown]
  - Premature delivery [Unknown]
